FAERS Safety Report 15249968 (Version 1)
Quarter: 2018Q3

REPORT INFORMATION
  Report Type: Spontaneous
  Country: US (occurrence: US)
  Receive Date: 20180716
  Receipt Date: 20180716
  Transmission Date: 20181010
  Serious: Yes (Life-Threatening, Other)
  Sender: FDA-Public Use
  Company Number: None

PATIENT
  Age: 37 Year
  Sex: Female
  Weight: 72 kg

DRUGS (6)
  1. ZINC SUPPLEMENT [Concomitant]
  2. LEVETIRACETAM. [Concomitant]
     Active Substance: LEVETIRACETAM
  3. ROSEWATER, COCOA BUTTER, BEESWAX, AND ROMAN CHAMOMILE AND ROSE [Concomitant]
  4. MULTIVITAMIN [Concomitant]
     Active Substance: VITAMINS
  5. PREDNISONE 10MG** TABLETS [Suspect]
     Active Substance: PREDNISONE
     Indication: DERMATITIS CONTACT
     Dosage: ?          OTHER FREQUENCY:NOT ENOUGH SPACE T;?
     Route: 048
     Dates: start: 20180707, end: 20180715
  6. VITAMIN C GUMMIES [Concomitant]

REACTIONS (3)
  - Depression [None]
  - Drug ineffective [None]
  - Generalised tonic-clonic seizure [None]

NARRATIVE: CASE EVENT DATE: 20180708
